FAERS Safety Report 17421072 (Version 3)
Quarter: 2020Q1

REPORT INFORMATION
  Report Type: Spontaneous
  Country: US (occurrence: US)
  Receive Date: 20200214
  Receipt Date: 20200327
  Transmission Date: 20200409
  Serious: Yes (Hospitalization, Other)
  Sender: FDA-Public Use
  Company Number: US-009507513-2002USA003443

PATIENT
  Age: 65 Year
  Sex: Female
  Weight: 86.7 kg

DRUGS (6)
  1. KEYTRUDA [Suspect]
     Active Substance: PEMBROLIZUMAB
     Dosage: 200 MILLIGRAM, Q3W (2 VIALS OF 100 MG USED)
     Route: 042
     Dates: start: 20191217
  2. KEYTRUDA [Suspect]
     Active Substance: PEMBROLIZUMAB
     Indication: METASTATIC MALIGNANT MELANOMA
     Dosage: 200 MILLIGRAM, Q3W (2 VIALS OF 100 MG USED)
     Route: 042
     Dates: start: 20191015
  3. KEYTRUDA [Suspect]
     Active Substance: PEMBROLIZUMAB
     Dosage: 200 MILLIGRAM, Q3W (2 VIALS OF 100 MG USED)
     Route: 042
     Dates: start: 20191105
  4. KEYTRUDA [Suspect]
     Active Substance: PEMBROLIZUMAB
     Dosage: 200 MILLIGRAM, Q3W (2 VIALS OF 100 MG USED)
     Route: 042
     Dates: start: 20200128
  5. KEYTRUDA [Suspect]
     Active Substance: PEMBROLIZUMAB
     Dosage: 200 MILLIGRAM, Q3W (2 VIALS OF 100 MG USED)
     Route: 042
     Dates: start: 20191126
  6. KEYTRUDA [Suspect]
     Active Substance: PEMBROLIZUMAB
     Dosage: 200 MILLIGRAM, Q3W (2 VIALS OF 100 MG USED)
     Route: 042
     Dates: start: 20200107

REACTIONS (23)
  - Enteritis [Recovered/Resolved]
  - Monocyte percentage increased [Unknown]
  - Basophil count decreased [Unknown]
  - Urinary casts [Unknown]
  - White blood cell count increased [Unknown]
  - Blood albumin decreased [Unknown]
  - Platelet count increased [Unknown]
  - Platelet disorder [Unknown]
  - Neutrophil percentage increased [Unknown]
  - Band neutrophil percentage increased [Unknown]
  - Metamyelocyte percentage increased [Unknown]
  - Blood glucose increased [Unknown]
  - Liver function test increased [Unknown]
  - Anaemia of chronic disease [Unknown]
  - Hypokalaemia [Unknown]
  - Protein total decreased [Unknown]
  - Neutrophil count increased [Unknown]
  - Platelet morphology abnormal [Unknown]
  - Lymphocyte percentage decreased [Unknown]
  - Urine abnormality [Unknown]
  - Monocyte count increased [Unknown]
  - Bilirubin urine present [Unknown]
  - White blood cells urine positive [Unknown]

NARRATIVE: CASE EVENT DATE: 20200130
